FAERS Safety Report 8289954-3 (Version None)
Quarter: 2012Q2

REPORT INFORMATION
  Report Type: 
  Country: None (occurrence: None)
  Receive Date: 20120417
  Receipt Date: 20120411
  Transmission Date: 20120825
  Serious: Yes (Hospitalization, Congenital Anomaly, Other)
  Sender: FDA-Public Use
  Company Number: US-PFIZER INC-2011077307

PATIENT
  Sex: Male

DRUGS (36)
  1. ZOLOFT [Suspect]
     Indication: DEPRESSION
     Dosage: 100 MG, 1X/DAY, AT BED TIME
     Route: 064
  2. ZOLOFT [Suspect]
     Dosage: 50 MG, UNK
     Route: 064
  3. MULTI-VITAMINS [Concomitant]
     Dosage: ONCE A DAY
     Route: 064
  4. MULTI-VITAMINS [Concomitant]
     Dosage: UNK
     Route: 064
     Dates: start: 20020328
  5. CEFTIN [Concomitant]
     Dosage: UNK
     Route: 064
     Dates: start: 20020628
  6. SEREVENT [Concomitant]
     Dosage: 21 UG, UNK
     Route: 064
     Dates: start: 20020201
  7. NICOTINE [Concomitant]
     Dosage: 14 MG FOR 24 HOUR, UNK
     Route: 064
     Dates: start: 20020424
  8. METHYLPREDNISOLONE ACETATE [Concomitant]
     Dosage: 4 MG, UNK
     Route: 064
     Dates: start: 20020626
  9. ZITHROMAX [Concomitant]
     Route: 064
  10. ZOLOFT [Suspect]
     Dosage: 200 MG, 1X/DAY
     Route: 064
     Dates: start: 20011127
  11. REVIA [Concomitant]
     Dosage: 25 MG, 2X/DAY
     Route: 064
     Dates: start: 20011030, end: 20020108
  12. ALBUTEROL [Concomitant]
     Dosage: 90 UG, UNK
     Route: 064
     Dates: start: 20020201
  13. ATROVENT [Concomitant]
     Dosage: UNIT DOSE HAND HELD NEBULIZER EVERY 4 HOURS
     Route: 064
  14. MONTELUKAST [Concomitant]
     Dosage: 10 MG, UNK
     Route: 064
     Dates: start: 20020422
  15. PREDNISONE [Concomitant]
     Dosage: 10 MG, UNK
     Route: 064
     Dates: start: 20020119
  16. BENADRYL [Concomitant]
     Dosage: 25 MG, EVERY 4 HRS
     Route: 064
  17. ALBUTEROL [Concomitant]
     Dosage: UNIT DOSE HAND HELD NEBULIZER EVERY 4 HOURS WHILE AWAKE
     Route: 064
  18. COMBIVENT [Concomitant]
     Dosage: UNK
     Route: 064
     Dates: start: 20020201
  19. HYDROXYZINE [Concomitant]
     Dosage: 25 MG, UNK
     Route: 064
     Dates: start: 20020407
  20. HYDROCODONE [Concomitant]
     Indication: ARTHRITIS
     Dosage: 5/500 TWICE A DAY FOR ONE MONTH
     Route: 064
  21. CEFTIN [Concomitant]
     Dosage: 250 MG, 2X/DAY WITH FOOD
     Route: 064
  22. VANCERIL [Concomitant]
     Dosage: UNK
     Route: 064
     Dates: start: 20020305
  23. ADVAIR DISKUS 100/50 [Concomitant]
     Dosage: 5/500
     Route: 064
     Dates: start: 20020701
  24. BENADRYL [Concomitant]
     Dosage: UNK
     Route: 064
     Dates: start: 20020724
  25. SOLU-MEDROL [Concomitant]
     Dosage: 125 MG, EVERY 6 HOURS, EVERY 8 HOURS
     Route: 064
  26. ATROVENT [Concomitant]
     Dosage: UNK
     Route: 064
     Dates: start: 20020702
  27. FLOVENT [Concomitant]
     Indication: ASTHMA
     Dosage: 110 UG, UNK
     Route: 064
     Dates: start: 20020114
  28. ACETAMINOPHEN AND HYDROCODONE BITARTRATE [Concomitant]
     Dosage: 5/500
     Route: 064
     Dates: start: 20020114
  29. FLEXERIL [Concomitant]
     Dosage: 10 MG, UNK
     Route: 064
  30. NICODERM [Concomitant]
     Dosage: 21 MG PER HOUR PATCH, ONE PATCH ONE DAY
     Route: 064
  31. AMOXICILLIN [Concomitant]
     Dosage: 500 MG, UNK
     Route: 064
     Dates: start: 20020309
  32. COLACE [Concomitant]
     Dosage: 100 MG, UNK
     Route: 064
  33. SEROQUEL [Concomitant]
     Indication: HALLUCINATION
     Dosage: 100 MG, 1X/DAY, AT BED TIME
     Route: 064
  34. SEROQUEL [Concomitant]
     Dosage: 300 MG, UNK
     Route: 064
     Dates: start: 20020201
  35. AEROBID [Concomitant]
     Dosage: UNK
     Route: 064
     Dates: start: 20020111
  36. BIAXIN XL [Concomitant]
     Dosage: 500 MG, UNK
     Route: 064
     Dates: start: 20020119

REACTIONS (8)
  - TALIPES [None]
  - SEPSIS NEONATAL [None]
  - VITREOUS HAEMORRHAGE [None]
  - ENTEROCOCCAL BACTERAEMIA [None]
  - TRANSVERSE SINUS THROMBOSIS [None]
  - MATERNAL EXPOSURE TIMING UNSPECIFIED [None]
  - CONVULSION NEONATAL [None]
  - RETINAL HAEMORRHAGE [None]
